FAERS Safety Report 16990841 (Version 1)
Quarter: 2019Q4

REPORT INFORMATION
  Report Type: Spontaneous
  Country: GB (occurrence: GB)
  Receive Date: 20191104
  Receipt Date: 20191104
  Transmission Date: 20200122
  Serious: Yes (Hospitalization)
  Sender: FDA-Public Use
  Company Number: GB-MYLANLABS-2019M1104158

PATIENT
  Age: 66 Year
  Sex: Male

DRUGS (14)
  1. GABAPENTIN. [Concomitant]
     Active Substance: GABAPENTIN
     Dosage: 200 MILLIGRAM, QD
  2. MORPHGESIC [Concomitant]
     Active Substance: MORPHINE SULFATE
     Dosage: SLOW RELEASE
  3. LACTULOSE. [Concomitant]
     Active Substance: LACTULOSE
     Dosage: 40 MILLILITER, QD
  4. MORPHINE SULFATE. [Concomitant]
     Active Substance: MORPHINE SULFATE
     Dosage: 2.5- 5ML FOUR TIMES A DAY
  5. DERMOL                             /01330701/ [Concomitant]
     Dosage: SHOWER EMOLLIENT, USE AS DIRECTED
  6. ATENOLOL. [Concomitant]
     Active Substance: ATENOLOL
  7. PERINDOPRIL TERT-BUTYLAMINE [Concomitant]
     Active Substance: PERINDOPRIL ERBUMINE
     Dosage: 8 MILLIGRAM, QD
  8. DIHYDROCODEINE [Concomitant]
     Active Substance: DIHYDROCODEINE
     Dosage: MODIFIED RELEASE
  9. VITAMIN B [Concomitant]
     Active Substance: VITAMIN B
     Dosage: STRONG
  10. WARFARIN [Suspect]
     Active Substance: WARFARIN
     Indication: PRODUCT USED FOR UNKNOWN INDICATION
     Dosage: 5 MILLIGRAM, QD
  11. ULTRABASE                          /00103901/ [Concomitant]
     Dosage: USE AS DIRECTED
  12. BECLOMETASONE [Concomitant]
     Active Substance: BECLOMETHASONE DIPROPIONATE
     Dosage: 100 MICROGRAM, QD
     Route: 045
  13. PARACETAMOL [Concomitant]
     Active Substance: ACETAMINOPHEN
     Dosage: 4 TIMES PER DAY
  14. DOXAZOSIN [Concomitant]
     Active Substance: DOXAZOSIN MESYLATE
     Dosage: 8 MILLIGRAM, QD

REACTIONS (3)
  - Dysphagia [Unknown]
  - Headache [Unknown]
  - Cerebral haemorrhage [Unknown]
